FAERS Safety Report 23508042 (Version 1)
Quarter: 2024Q1

REPORT INFORMATION
  Report Type: Spontaneous
  Country: US (occurrence: US)
  Receive Date: 20240209
  Receipt Date: 20240209
  Transmission Date: 20240409
  Serious: No
  Sender: FDA-Public Use
  Company Number: US-ELI_LILLY_AND_COMPANY-US202402001576

PATIENT
  Age: 47 Year
  Sex: Female

DRUGS (8)
  1. MOUNJARO [Suspect]
     Active Substance: TIRZEPATIDE
     Indication: Product used for unknown indication
     Dosage: 5 MG, WEEKLY (1/W)
     Route: 058
     Dates: start: 202310
  2. MOUNJARO [Suspect]
     Active Substance: TIRZEPATIDE
     Indication: Product used for unknown indication
     Dosage: 5 MG, WEEKLY (1/W)
     Route: 058
     Dates: start: 202310
  3. MOUNJARO [Suspect]
     Active Substance: TIRZEPATIDE
     Indication: Product used for unknown indication
     Dosage: 5 MG, WEEKLY (1/W)
     Route: 058
     Dates: start: 202310
  4. MOUNJARO [Suspect]
     Active Substance: TIRZEPATIDE
     Indication: Product used for unknown indication
     Dosage: 5 MG, WEEKLY (1/W)
     Route: 058
     Dates: start: 202310
  5. MOUNJARO [Suspect]
     Active Substance: TIRZEPATIDE
     Dosage: UNK UNK, WEEKLY (1/W)
     Route: 058
     Dates: start: 202309, end: 202310
  6. MOUNJARO [Suspect]
     Active Substance: TIRZEPATIDE
     Dosage: UNK UNK, WEEKLY (1/W)
     Route: 058
     Dates: start: 202309, end: 202310
  7. MOUNJARO [Suspect]
     Active Substance: TIRZEPATIDE
     Dosage: UNK UNK, WEEKLY (1/W)
     Route: 058
     Dates: start: 202309, end: 202310
  8. MOUNJARO [Suspect]
     Active Substance: TIRZEPATIDE
     Dosage: UNK UNK, WEEKLY (1/W)
     Route: 058
     Dates: start: 202309, end: 202310

REACTIONS (7)
  - Chapped lips [Recovering/Resolving]
  - Cheilitis [Recovering/Resolving]
  - Lip erythema [Recovering/Resolving]
  - Lip exfoliation [Recovering/Resolving]
  - Lip blister [Recovering/Resolving]
  - Dehydration [Unknown]
  - Lip swelling [Recovering/Resolving]
